FAERS Safety Report 21312014 (Version 1)
Quarter: 2022Q3

REPORT INFORMATION
  Report Type: Spontaneous
  Country: US (occurrence: None)
  Receive Date: 20220908
  Receipt Date: 20220908
  Transmission Date: 20221027
  Serious: Yes (Other)
  Sender: FDA-Public Use
  Company Number: None

PATIENT
  Age: 86 Year
  Sex: Male
  Weight: 68.4 kg

DRUGS (6)
  1. LAGEVRIO [Suspect]
     Active Substance: MOLNUPIRAVIR
     Indication: COVID-19
     Dosage: FREQUENCY : TWICE A DAY;?
     Route: 048
     Dates: start: 20220906
  2. LOSARTAN [Concomitant]
     Active Substance: LOSARTAN
     Dates: start: 19960101
  3. ASPIRIN [Concomitant]
     Active Substance: ASPIRIN
     Dates: start: 19960101
  4. ROSUVASTATIN [Concomitant]
     Active Substance: ROSUVASTATIN
     Dates: start: 19960101
  5. CALCIUM [Concomitant]
     Active Substance: CALCIUM
     Dates: start: 19960101
  6. Centurium [Concomitant]
     Dates: start: 19960101

REACTIONS (1)
  - Dysphonia [None]

NARRATIVE: CASE EVENT DATE: 20220908
